FAERS Safety Report 5376748-1 (Version None)
Quarter: 2007Q3

REPORT INFORMATION
  Report Type: 
  Country: None (occurrence: None)
  Receive Date: 20070703
  Receipt Date: 20070627
  Transmission Date: 20080115
  Serious: Yes (Other)
  Sender: FDA-Public Use
  Company Number: PHEH2007US05413

PATIENT
  Age: 55 Year
  Sex: Female

DRUGS (10)
  1. ZELNORM [Suspect]
     Indication: IRRITABLE BOWEL SYNDROME
     Dosage: 6 MG, BID
     Dates: start: 20060101
  2. PROZAC [Concomitant]
     Dosage: 20 MG, QD
     Dates: start: 20060101
  3. FLEXERIL [Concomitant]
     Indication: BACK PAIN
     Dosage: 10 MG, Q4H
     Dates: start: 20030101
  4. LIPITOR [Concomitant]
     Indication: BLOOD CHOLESTEROL
     Dosage: 80 MG, QD
     Dates: start: 20010101
  5. ZETIA [Concomitant]
     Indication: BLOOD CHOLESTEROL
     Dosage: 10 MG, QD
     Dates: start: 20060101
  6. ESTRADERM [Concomitant]
     Dosage: 0.1 MG, BIW
     Dates: start: 20000101
  7. LOTREL [Concomitant]
     Indication: HYPERTENSION
     Dosage: 10/20MG, BID
     Dates: start: 20020101
  8. ASPIRIN [Concomitant]
  9. NEXIUM [Concomitant]
     Dosage: 40 MG, BID
     Dates: start: 20060101
  10. TOPROL-XL [Concomitant]
     Indication: PROPHYLAXIS
     Dosage: 100 MG, QD
     Dates: start: 20020101

REACTIONS (5)
  - BACK DISORDER [None]
  - CARDIAC FLUTTER [None]
  - CONDITION AGGRAVATED [None]
  - RAYNAUD'S PHENOMENON [None]
  - SYSTEMIC LUPUS ERYTHEMATOSUS [None]
